FAERS Safety Report 4970299-1 (Version None)
Quarter: 2006Q2

REPORT INFORMATION
  Report Type: 
  Country: None (occurrence: None)
  Receive Date: 20060412
  Receipt Date: 20060403
  Transmission Date: 20061013
  Serious: Yes (Hospitalization, Disabling, Other)
  Sender: FDA-Public Use
  Company Number: US-JNJFOC-20050702180

PATIENT
  Sex: Female
  Weight: 47.17 kg

DRUGS (50)
  1. REMICADE [Suspect]
  2. REMICADE [Suspect]
  3. REMICADE [Suspect]
  4. REMICADE [Suspect]
  5. REMICADE [Suspect]
     Dosage: THIRD DOSE
  6. REMICADE [Suspect]
  7. REMICADE [Suspect]
  8. REMICADE [Suspect]
     Dosage: RE-STARTED AT 0,2 AND 6 WEEKS AFTER MISSING MAR-2003 DOSE
  9. REMICADE [Suspect]
  10. REMICADE [Suspect]
  11. REMICADE [Suspect]
     Dosage: #2
  12. REMICADE [Suspect]
     Indication: CROHN'S DISEASE
     Dosage: FIRST DOSE
  13. ZOLOFT [Suspect]
     Route: 048
  14. ZOLOFT [Suspect]
     Route: 048
  15. ZOLOFT [Suspect]
     Route: 048
  16. ZOLOFT [Suspect]
     Route: 048
  17. ZOLOFT [Suspect]
     Route: 048
  18. FLAGYL [Suspect]
     Route: 048
  19. FLAGYL [Suspect]
     Indication: AMOEBIC COLITIS
     Route: 048
  20. FLAGYL [Suspect]
     Route: 048
  21. THALIDOMIDE [Suspect]
     Dosage: AT HS
  22. SULFASALAZINE [Suspect]
     Route: 048
  23. EFFEXOR [Suspect]
     Route: 048
  24. EFFEXOR [Suspect]
     Route: 048
  25. IMURAN [Concomitant]
  26. IMURAN [Concomitant]
     Dosage: ? START DATE (BETWEEN OCT 2002 AND JAN-2003)
  27. IMURAN [Concomitant]
  28. IMURAN [Concomitant]
  29. IMURAN [Concomitant]
  30. FOLIC ACID [Concomitant]
  31. LEXAPRO [Concomitant]
     Route: 048
  32. PREDNISONE [Concomitant]
     Dosage: 15 MG EVERY OTHER DAYS
     Route: 048
  33. PREDNISONE [Concomitant]
     Route: 048
  34. PREDNISONE [Concomitant]
     Route: 048
  35. PREDNISONE [Concomitant]
     Route: 048
  36. PREDNISONE [Concomitant]
     Route: 048
  37. PREDNISONE [Concomitant]
     Route: 048
  38. PREDNISONE [Concomitant]
     Indication: CROHN'S DISEASE
     Route: 048
  39. ASACOL [Concomitant]
     Route: 048
  40. ASACOL [Concomitant]
     Route: 048
  41. ASACOL [Concomitant]
     Route: 048
  42. ASACOL [Concomitant]
     Indication: CROHN'S DISEASE
     Route: 048
  43. DEPO-PROVERA [Concomitant]
     Route: 030
  44. DEPO-PROVERA [Concomitant]
     Route: 030
  45. PAXIL [Concomitant]
     Indication: DEPRESSION
     Route: 048
  46. WELLBUTRIN SR [Concomitant]
     Route: 048
  47. WELLBUTRIN SR [Concomitant]
     Indication: DEPRESSION
     Route: 048
  48. IRON [Concomitant]
     Route: 048
  49. PRILOSEC [Concomitant]
     Dosage: PATIENT STOPPED ON HER OWN
     Route: 048
  50. METHOTREXATE [Concomitant]
     Route: 050

REACTIONS (30)
  - ACNE [None]
  - ADVERSE DRUG REACTION [None]
  - ANAL FISTULA [None]
  - CANDIDIASIS [None]
  - CEREBRAL ATROPHY [None]
  - CROHN'S DISEASE [None]
  - DRUG ERUPTION [None]
  - ECZEMA INFECTED [None]
  - EPISTAXIS [None]
  - HEADACHE [None]
  - HORDEOLUM [None]
  - INFECTION [None]
  - LEUKOENCEPHALOPATHY [None]
  - LICE INFESTATION [None]
  - MAJOR DEPRESSION [None]
  - MOLLUSCUM CONTAGIOSUM [None]
  - NASAL CONGESTION [None]
  - NEUROPATHY PERIPHERAL [None]
  - OBSESSIVE-COMPULSIVE DISORDER [None]
  - PARAESTHESIA [None]
  - PELVIC ABSCESS [None]
  - PELVIC INFLAMMATORY DISEASE [None]
  - PERIANAL ABSCESS [None]
  - PHARYNGITIS STREPTOCOCCAL [None]
  - ROAD TRAFFIC ACCIDENT [None]
  - SKIN INFECTION [None]
  - SUICIDAL IDEATION [None]
  - TONSILLITIS [None]
  - VAGINAL CANDIDIASIS [None]
  - VIRAL INFECTION [None]
